FAERS Safety Report 8476580-6 (Version None)
Quarter: 2012Q2

REPORT INFORMATION
  Report Type: 
  Country: None (occurrence: None)
  Receive Date: 20120628
  Receipt Date: 20120620
  Transmission Date: 20120825
  Serious: Yes (Other)
  Sender: FDA-Public Use
  Company Number: US-US-EMD SERONO, INC.-7142923

PATIENT
  Sex: Female

DRUGS (1)
  1. REBIF [Suspect]
     Indication: PRODUCT USED FOR UNKNOWN INDICATION
     Route: 058
     Dates: start: 20091105

REACTIONS (11)
  - SENSATION OF HEAVINESS [None]
  - PAIN IN EXTREMITY [None]
  - INFLUENZA LIKE ILLNESS [None]
  - INJECTION SITE DISCOLOURATION [None]
  - INJECTION SITE NODULE [None]
  - ABORTION SPONTANEOUS [None]
  - ANXIETY [None]
  - ARTHRALGIA [None]
  - INJECTION SITE PAIN [None]
  - MATERNAL EXPOSURE TIMING UNSPECIFIED [None]
  - MEMORY IMPAIRMENT [None]
